FAERS Safety Report 7226340-9 (Version None)
Quarter: 2011Q1

REPORT INFORMATION
  Report Type: 
  Country: None (occurrence: None)
  Receive Date: 20110114
  Receipt Date: 20110110
  Transmission Date: 20110831
  Serious: Yes (Death, Hospitalization, Other)
  Sender: FDA-Public Use
  Company Number: PHHY2008AU24911

PATIENT
  Sex: Female

DRUGS (5)
  1. CLOZARIL [Suspect]
     Dosage: 325 MG
  2. CLOZARIL [Suspect]
     Dosage: 450 MG
     Dates: start: 20040830
  3. CLOZARIL [Suspect]
     Dosage: 200 MG, UNK
  4. CLOZARIL [Suspect]
     Dosage: 125 MG
  5. CLOZARIL [Suspect]
     Dosage: 100 MG MORNING, 125 MG NIGHT

REACTIONS (6)
  - LOWER RESPIRATORY TRACT INFECTION [None]
  - TERTIARY SYPHILIS [None]
  - CHRONIC OBSTRUCTIVE PULMONARY DISEASE [None]
  - MALAISE [None]
  - DEATH [None]
  - PNEUMONIA [None]
